FAERS Safety Report 6479656-8 (Version None)
Quarter: 2009Q4

REPORT INFORMATION
  Report Type: 
  Country: None (occurrence: None)
  Receive Date: 20091207
  Receipt Date: 20091207
  Transmission Date: 20100525
  Serious: No
  Sender: FDA-Public Use
  Company Number: None

PATIENT
  Sex: Female
  Weight: 57 kg

DRUGS (2)
  1. FLUOROURACIL [Suspect]
     Dosage: 2.4 G
  2. ELOXATIN [Suspect]
     Dosage: 160 MG

REACTIONS (1)
  - NEUTROPENIA [None]
